FAERS Safety Report 10375368 (Version 1)
Quarter: 2014Q3

REPORT INFORMATION
  Report Type: Spontaneous
  Country: DE (occurrence: None)
  Receive Date: 20140806
  Receipt Date: 20140806
  Transmission Date: 20150326
  Serious: Yes (Hospitalization)
  Sender: FDA-Public Use
  Company Number: 14-M=DE-00152

PATIENT
  Sex: Male

DRUGS (17)
  1. RITUXIMAB (RITUXIMAB) [Suspect]
     Active Substance: RITUXIMAB
     Indication: NON-HODGKIN^S LYMPHOMA
     Dosage: 731MG, 1/DAY, INTRAVENOUS
     Route: 042
     Dates: end: 20140703
  2. PREDNISOLONE (PREDNISOLONE) [Suspect]
     Active Substance: PREDNISOLONE
     Indication: NON-HODGKIN^S LYMPHOMA
     Dosage: 100MG, 1/DAY, ORAL
     Route: 048
     Dates: end: 20140617
  3. PEGFILGRASTIM (PEGFILGRASTIM) [Concomitant]
     Active Substance: PEGFILGRASTIM
  4. INEGY (EZETIMIBE, SIMVASTATIN) [Concomitant]
  5. PANTOPRAZOL (PANTOPRAZOLE SODIUM) [Concomitant]
  6. COTRIM FORTE EU RHO (SULFAMETHOXAZOLE, TRIMETHOPRIM) [Concomitant]
  7. INSPRA [Concomitant]
     Active Substance: EPLERENONE
  8. DOXORUBICIN (DOXORUBICIN) [Suspect]
     Active Substance: DOXORUBICIN
     Indication: NON-HODGKIN^S LYMPHOMA
     Dosage: 96MG 1/DAY INTRAVENOUS
     Route: 042
     Dates: end: 20140613
  9. CHOLECALCIFEROL (COLECALCIFEROL) [Concomitant]
  10. ACICLOVIR (ACICLOVIR) [Concomitant]
     Active Substance: ACYCLOVIR
  11. ENOXAPARIN (ENOXAPARIN) [Concomitant]
     Active Substance: ENOXAPARIN
  12. ENALAPRIL MALEATE (ENALAPRIL MALEATE) [Concomitant]
     Active Substance: ENALAPRIL MALEATE
  13. VINCRISTINE SULFATE LIPOSOME [Suspect]
     Active Substance: VINCRISTINE SULFATE
     Indication: NON-HODGKIN^S LYMPHOMA
     Dosage: 4.18MG, 1/DAY INTRAVENOUS
     Route: 042
     Dates: end: 20140613
  14. RANOLAZINE (RANOLAZINE) [Concomitant]
  15. FUROSEMIDE (FUROSEMIDE) [Concomitant]
     Active Substance: FUROSEMIDE
  16. CYCLOPHOSPHAMIDE (CYCLOPHOSPHAMIDE) [Suspect]
     Active Substance: CYCLOPHOSPHAMIDE
     Indication: NON-HODGKIN^S LYMPHOMA
     Dosage: 1463MG 1/DAY INTRAVENOUS
     Route: 042
     Dates: end: 20140613
  17. BISOPROLOL FUMARATE (BISOPROLOL FUMARATE) [Concomitant]

REACTIONS (2)
  - Infection in an immunocompromised host [None]
  - General physical health deterioration [None]

NARRATIVE: CASE EVENT DATE: 20140714
